FAERS Safety Report 7712497-X (Version None)
Quarter: 2011Q3

REPORT INFORMATION
  Report Type: 
  Country: None (occurrence: None)
  Receive Date: 20110826
  Receipt Date: 20110826
  Transmission Date: 20111222
  Serious: No
  Sender: FDA-Public Use
  Company Number: None

PATIENT
  Age: 61 Year
  Sex: Female
  Weight: 95.254 kg

DRUGS (1)
  1. KLOR-CON [Suspect]
     Indication: ELECTROLYTE SUBSTITUTION THERAPY
     Dosage: 1 ABLET
     Route: 048
     Dates: start: 20110601, end: 20110825

REACTIONS (2)
  - MEDICATION RESIDUE [None]
  - MUSCLE SPASMS [None]
